FAERS Safety Report 4614550-6 (Version None)
Quarter: 2005Q2

REPORT INFORMATION
  Report Type: 
  Country: None (occurrence: None)
  Receive Date: 20050307
  Receipt Date: 20050121
  Transmission Date: 20051028
  Serious: No
  Sender: FDA-Public Use
  Company Number: USA041184582

PATIENT
  Sex: Male
  Weight: 80 kg

DRUGS (5)
  1. ALIMTA [Suspect]
     Indication: LUNG NEOPLASM MALIGNANT
     Dosage: 300 MG
     Dates: start: 20040901
  2. FOLIC ACID [Concomitant]
  3. VITAMIN B-12 [Concomitant]
  4. DEXAMETHASONE [Concomitant]
  5. MULTIVITAMIN AND MINERAL SUPPLEMENT [Concomitant]

REACTIONS (1)
  - WEIGHT DECREASED [None]
